FAERS Safety Report 7014083-6 (Version None)
Quarter: 2010Q3

REPORT INFORMATION
  Report Type: 
  Country: None (occurrence: None)
  Receive Date: 20100927
  Receipt Date: 20100324
  Transmission Date: 20110219
  Serious: Yes (Hospitalization)
  Sender: FDA-Public Use
  Company Number: US-BIOGENIDEC-2010BI008811

PATIENT
  Age: 55 Year
  Sex: Male
  Weight: 70 kg

DRUGS (5)
  1. TYSABRI [Suspect]
     Indication: MULTIPLE SCLEROSIS
     Route: 042
     Dates: start: 20070701, end: 20091229
  2. BYSTOLIC [Concomitant]
     Indication: HYPERTENSION
     Dates: start: 20100201
  3. POTASSIUM [Concomitant]
     Dates: start: 20070101
  4. DIURETIC (NOS) [Concomitant]
     Dates: start: 20070101, end: 20100301
  5. MULTI-VITAMINS [Concomitant]
     Dates: start: 19570101

REACTIONS (2)
  - MULTIPLE SCLEROSIS RELAPSE [None]
  - SECONDARY PROGRESSIVE MULTIPLE SCLEROSIS [None]
